FAERS Safety Report 9338240 (Version 1)
Quarter: 2013Q2

REPORT INFORMATION
  Report Type: Spontaneous
  Country: US (occurrence: None)
  Receive Date: 20130605
  Receipt Date: 20130605
  Transmission Date: 20140414
  Serious: Yes (Other)
  Sender: FDA-Public Use
  Company Number: None

PATIENT
  Age: 56 Year
  Sex: Male

DRUGS (7)
  1. CIPROFLOXACIN [Suspect]
     Indication: GASTROINTESTINAL INFECTION
     Dosage: STRENGTH 500  QUANTITY  20  FREQUENCY  1 TAB EVERY 12 HRS   ORALLY
     Route: 048
     Dates: start: 20130525, end: 20130526
  2. FLAGYL [Concomitant]
  3. METHYLPREDNISOLONE [Concomitant]
  4. OCUVITE [Concomitant]
  5. B-COMPLEX [Concomitant]
  6. D3 [Concomitant]
  7. FOLIC ACID [Concomitant]

REACTIONS (6)
  - Arthralgia [None]
  - Arthralgia [None]
  - Arthralgia [None]
  - Back pain [None]
  - Gait disturbance [None]
  - Discomfort [None]
